FAERS Safety Report 5565668-5 (Version None)
Quarter: 2007Q4

REPORT INFORMATION
  Report Type: 
  Country: None (occurrence: None)
  Receive Date: 20071130
  Receipt Date: 20070910
  Transmission Date: 20080405
  Serious: No
  Sender: FDA-Public Use
  Company Number: US200709001882

PATIENT
  Age: 65 Year
  Sex: Male
  Weight: 137.9 kg

DRUGS (4)
  1. BYETTA [Suspect]
     Indication: TYPE 2 DIABETES MELLITUS
     Dosage: 5 UG, 2/D, SUBCUTANEOUS
     Route: 058
     Dates: start: 20070801
  2. INSULIN (INSULIN) [Concomitant]
  3. METFORMIN HCL [Concomitant]
  4. DIOVAN HCT [Concomitant]

REACTIONS (6)
  - BLOOD GLUCOSE DECREASED [None]
  - DIARRHOEA [None]
  - FEELING COLD [None]
  - MALAISE [None]
  - SOMNOLENCE [None]
  - WEIGHT DECREASED [None]
